FAERS Safety Report 22120966 (Version 1)
Quarter: 2023Q1

REPORT INFORMATION
  Report Type: Spontaneous
  Country: US (occurrence: US)
  Receive Date: 20230321
  Receipt Date: 20230321
  Transmission Date: 20230418
  Serious: Yes (Other)
  Sender: FDA-Public Use
  Company Number: US-SA-SAC20230320001047

PATIENT
  Age: 6 Year
  Sex: Male

DRUGS (2)
  1. ELOCTATE [Suspect]
     Active Substance: EFMOROCTOCOG ALFA
     Indication: Factor VIII deficiency
     Dosage: 1900 UNITS (1710-2090) SLOW IV PUSH TWICE A WEEK AND AS NEEDED
     Route: 042
     Dates: start: 201705
  2. ELOCTATE [Suspect]
     Active Substance: EFMOROCTOCOG ALFA
     Indication: Factor VIII deficiency
     Dosage: 1900 UNITS (1710-2090) SLOW IV PUSH TWICE A WEEK AND AS NEEDED
     Route: 042
     Dates: start: 201705

REACTIONS (2)
  - Haemorrhage [Unknown]
  - Contusion [Not Recovered/Not Resolved]
